FAERS Safety Report 5816365-X (Version None)
Quarter: 2008Q3

REPORT INFORMATION
  Report Type: 
  Country: None (occurrence: None)
  Receive Date: 20080721
  Receipt Date: 20080306
  Transmission Date: 20090109
  Serious: No
  Sender: FDA-Public Use
  Company Number: US-BAUSCH-2008BL001041

PATIENT
  Age: 51 Year
  Sex: Female

DRUGS (3)
  1. OPCON-A [Suspect]
     Route: 047
     Dates: start: 20080302, end: 20080302
  2. OPCON-A [Suspect]
     Route: 047
     Dates: start: 20080306, end: 20080306
  3. INDERAL LA [Concomitant]
     Indication: CLUSTER HEADACHE

REACTIONS (4)
  - DRUG HYPERSENSITIVITY [None]
  - LACRIMATION INCREASED [None]
  - MYDRIASIS [None]
  - PHOTOPHOBIA [None]
